FAERS Safety Report 9104104 (Version 1)
Quarter: 2013Q1

REPORT INFORMATION
  Report Type: Spontaneous
  Country: FR (occurrence: FR)
  Receive Date: 20130219
  Receipt Date: 20130219
  Transmission Date: 20140127
  Serious: Yes (Hospitalization)
  Sender: FDA-Public Use
  Company Number: FR-PFIZER INC-2013055826

PATIENT
  Age: 81 Year
  Sex: Female

DRUGS (11)
  1. ARACYTINE [Suspect]
     Indication: LYMPHOMA
     Dosage: 1 G ON DAY1 AND ON DAY2, 8 CYCLES
     Route: 042
     Dates: start: 20111121, end: 20120410
  2. ENDOXAN [Suspect]
     Indication: LYMPHOMA
     Dosage: 1100 MG ON DAY 1, 6 COURSES
     Route: 042
     Dates: start: 20101213, end: 20110330
  3. MABTHERA [Suspect]
     Indication: LYMPHOMA
     Dosage: 600 MG ON DAY 4
     Route: 042
     Dates: start: 20101213, end: 20110330
  4. LYRICA [Concomitant]
     Dosage: UNK
  5. KARDEGIC [Concomitant]
     Dosage: UNK
  6. INEXIUM [Concomitant]
     Dosage: UNK
  7. LEVOTHYROX [Concomitant]
     Dosage: UNK
  8. BACTRIM [Concomitant]
     Dosage: UNK
  9. ZELITREX [Concomitant]
     Dosage: UNK
  10. TRIATEC [Concomitant]
     Dosage: UNK
  11. DUROGESIC [Concomitant]
     Dosage: 100 UG, UNK

REACTIONS (1)
  - Interstitial lung disease [Not Recovered/Not Resolved]
